FAERS Safety Report 23906295 (Version 3)
Quarter: 2024Q3

REPORT INFORMATION
  Report Type: Report from Study
  Country: CA (occurrence: CA)
  Receive Date: 20240528
  Receipt Date: 20240822
  Transmission Date: 20241016
  Serious: Yes (Other)
  Sender: TAKEDA
  Company Number: CA-JNJFOC-20231241451

PATIENT
  Age: 47 Year
  Sex: Male

DRUGS (12)
  1. BORTEZOMIB [Suspect]
     Active Substance: BORTEZOMIB
     Indication: Plasma cell myeloma
     Dosage: UNK
     Route: 065
  2. DEXAMETHASONE [Suspect]
     Active Substance: DEXAMETHASONE
     Indication: Plasma cell myeloma
     Dosage: UNK
     Route: 065
  3. DARZALEX [Suspect]
     Active Substance: DARATUMUMAB
     Indication: Plasma cell myeloma
     Dosage: 1800 MILLIGRAM
     Route: 042
     Dates: start: 20231213
  4. DARZALEX [Suspect]
     Active Substance: DARATUMUMAB
     Dosage: 1700 MILLIGRAM
     Route: 042
     Dates: start: 20231213
  5. DARZALEX [Suspect]
     Active Substance: DARATUMUMAB
     Dosage: 1700 MILLIGRAM
     Route: 065
     Dates: start: 20231213
  6. DARZALEX [Suspect]
     Active Substance: DARATUMUMAB
     Dosage: 1800 MILLIGRAM, 1/WEEK
     Route: 042
     Dates: start: 20231213
  7. DARZALEX [Suspect]
     Active Substance: DARATUMUMAB
     Dosage: 1800 MILLIGRAM, 1/WEEK
     Route: 042
     Dates: start: 20231213
  8. DARZALEX [Suspect]
     Active Substance: DARATUMUMAB
     Dosage: UNK UNK, Q2WEEKS
     Route: 042
  9. DARZALEX [Suspect]
     Active Substance: DARATUMUMAB
     Dosage: 1800 MILLIGRAM, 1/WEEK
     Route: 042
     Dates: start: 20231213
  10. DARZALEX [Suspect]
     Active Substance: DARATUMUMAB
     Dosage: 1800 MILLIGRAM, 1/WEEK
     Route: 042
  11. DARZALEX [Suspect]
     Active Substance: DARATUMUMAB
     Dosage: 1800 MILLIGRAM, 1/WEEK
     Route: 042
     Dates: start: 20231213
  12. REVLIMID [Suspect]
     Active Substance: LENALIDOMIDE
     Indication: Plasma cell myeloma
     Dosage: UNK
     Route: 065

REACTIONS (18)
  - Thrombosis [Not Recovered/Not Resolved]
  - Central venous catheterisation [Unknown]
  - Transplant [Unknown]
  - Chromaturia [Recovered/Resolved]
  - Infusion related reaction [Recovered/Resolved]
  - Peripheral swelling [Not Recovered/Not Resolved]
  - Dry skin [Not Recovered/Not Resolved]
  - Intentional product use issue [Unknown]
  - Chills [Recovered/Resolved]
  - Rhinorrhoea [Unknown]
  - Pyrexia [Not Recovered/Not Resolved]
  - Nausea [Not Recovered/Not Resolved]
  - Paraesthesia [Not Recovered/Not Resolved]
  - Rash erythematous [Not Recovered/Not Resolved]
  - Rash [Not Recovered/Not Resolved]
  - Fatigue [Not Recovered/Not Resolved]
  - Arthralgia [Recovering/Resolving]
  - Cough [Recovering/Resolving]

NARRATIVE: CASE EVENT DATE: 20231201
